FAERS Safety Report 8579148-6 (Version None)
Quarter: 2012Q3

REPORT INFORMATION
  Report Type: 
  Country: None (occurrence: None)
  Receive Date: 20120808
  Receipt Date: 20120802
  Transmission Date: 20120928
  Serious: Yes (Other)
  Sender: FDA-Public Use
  Company Number: DE-ROCHE-1089157

PATIENT
  Age: 86 Year
  Sex: Male

DRUGS (8)
  1. HYDROMORPHONE HCL [Concomitant]
     Route: 065
  2. TORSEMIDE [Concomitant]
     Route: 065
  3. LUCENTIS [Suspect]
     Route: 050
     Dates: start: 20120701
  4. LUCENTIS [Suspect]
     Indication: AGE-RELATED MACULAR DEGENERATION
     Route: 050
     Dates: start: 20110601
  5. LUCENTIS [Suspect]
     Route: 050
     Dates: start: 20120601
  6. LUCENTIS [Suspect]
     Route: 050
     Dates: start: 20110801
  7. AVODART [Concomitant]
     Route: 065
  8. LUCENTIS [Suspect]
     Route: 050
     Dates: start: 20110701

REACTIONS (3)
  - CHRONIC LEUKAEMIA [None]
  - FEELING ABNORMAL [None]
  - FATIGUE [None]
